FAERS Safety Report 15933988 (Version 1)
Quarter: 2019Q1

REPORT INFORMATION
  Report Type: Spontaneous
  Country: US (occurrence: US)
  Receive Date: 20190207
  Receipt Date: 20190207
  Transmission Date: 20190417
  Serious: No
  Sender: FDA-Public Use
  Company Number: US-SA-2019SA031562

PATIENT
  Age: 40 Year
  Sex: Male
  Weight: 72 kg

DRUGS (10)
  1. NORMAL SALINE [Concomitant]
     Active Substance: SODIUM CHLORIDE
     Dosage: 0.9 %
     Route: 042
     Dates: start: 20181207
  2. LISINOPRIL. [Concomitant]
     Active Substance: LISINOPRIL
     Dosage: 1 TAB, QD
     Route: 048
     Dates: start: 20171016
  3. METFORMIN [Concomitant]
     Active Substance: METFORMIN HYDROCHLORIDE
     Dosage: 1 TAB, QD
     Route: 048
     Dates: start: 20171016
  4. CEPHALEXIN [CEFALEXIN] [Concomitant]
     Active Substance: CEPHALEXIN
     Dosage: 1 CAP
     Route: 048
     Dates: start: 20181207
  5. EPINEPHRINE. [Concomitant]
     Active Substance: EPINEPHRINE
     Dosage: 0.3 MG AS NEEDED
     Route: 030
     Dates: start: 20181207
  6. STERILE WATER [Concomitant]
     Active Substance: WATER
     Dosage: 290 ML AS NEEDED
     Route: 042
     Dates: start: 20181207
  7. AMLODIPINE BESYLATE. [Concomitant]
     Active Substance: AMLODIPINE BESYLATE
     Dosage: 1 TAB, QD
     Route: 048
     Dates: start: 20171016
  8. LUMIZYME [Suspect]
     Active Substance: ALGLUCOSIDASE ALFA
     Indication: GLYCOGEN STORAGE DISEASE TYPE II
     Dosage: 14500 MG EVERY OTHER WEEK
     Route: 041
     Dates: start: 20180104
  9. LIPITOR [Concomitant]
     Active Substance: ATORVASTATIN CALCIUM
     Dosage: 1 TAB, QD
     Route: 048
     Dates: start: 20171016
  10. LYRICA [Concomitant]
     Active Substance: PREGABALIN
     Dosage: 1 CAP BID
     Route: 048
     Dates: start: 20181207

REACTIONS (1)
  - Oropharyngeal pain [Unknown]

NARRATIVE: CASE EVENT DATE: 20190128
